FAERS Safety Report 6160232-1 (Version None)
Quarter: 2009Q2

REPORT INFORMATION
  Report Type: 
  Country: None (occurrence: None)
  Receive Date: 20090420
  Receipt Date: 20090407
  Transmission Date: 20091009
  Serious: Yes (Other)
  Sender: FDA-Public Use
  Company Number: B0568923A

PATIENT
  Sex: Male

DRUGS (2)
  1. CEFUROXIME [Suspect]
     Indication: UPPER RESPIRATORY TRACT INFECTION
     Dosage: 1UNIT SINGLE DOSE
     Route: 048
     Dates: start: 20081001, end: 20081001
  2. PRAZEPAM [Concomitant]
     Indication: DRUG USE FOR UNKNOWN INDICATION
     Route: 065

REACTIONS (6)
  - ANAPHYLACTIC REACTION [None]
  - FACE OEDEMA [None]
  - LOSS OF CONSCIOUSNESS [None]
  - MALAISE [None]
  - OEDEMA PERIPHERAL [None]
  - PRURITUS [None]
